FAERS Safety Report 7030600-4 (Version None)
Quarter: 2010Q4

REPORT INFORMATION
  Report Type: 
  Country: None (occurrence: None)
  Receive Date: 20101001
  Receipt Date: 20100916
  Transmission Date: 20110411
  Serious: Yes (Death, Other)
  Sender: FDA-Public Use
  Company Number: 011133

PATIENT

DRUGS (1)
  1. BUSULFEX [Suspect]
     Indication: STEM CELL TRANSPLANT
     Dosage: 8 MG/KG, UNKNOWN, UNKNOWN

REACTIONS (6)
  - ACUTE GRAFT VERSUS HOST DISEASE [None]
  - CHRONIC GRAFT VERSUS HOST DISEASE [None]
  - INFECTION [None]
  - LEUKAEMIA RECURRENT [None]
  - ORGAN FAILURE [None]
  - TREATMENT FAILURE [None]
